FAERS Safety Report 7250409-6 (Version None)
Quarter: 2011Q1

REPORT INFORMATION
  Report Type: 
  Country: None (occurrence: None)
  Receive Date: 20110128
  Receipt Date: 20110118
  Transmission Date: 20110831
  Serious: Yes (Other)
  Sender: FDA-Public Use
  Company Number: US-ROCHE-752392

PATIENT
  Sex: Male
  Weight: 74.8 kg

DRUGS (1)
  1. ACCUTANE [Suspect]
     Indication: ACNE
     Route: 065
     Dates: start: 20010801, end: 20020601

REACTIONS (10)
  - DRY SKIN [None]
  - ARTHRALGIA [None]
  - COLITIS ULCERATIVE [None]
  - RASH PAPULAR [None]
  - LIP DRY [None]
  - CHOLANGITIS SCLEROSING [None]
  - EPISTAXIS [None]
  - ACNE [None]
  - CROHN'S DISEASE [None]
  - MOOD SWINGS [None]
